FAERS Safety Report 10600159 (Version 1)
Quarter: 2014Q4

REPORT INFORMATION
  Report Type: Report from Study
  Country: GB (occurrence: GB)
  Receive Date: 20141122
  Receipt Date: 20141122
  Transmission Date: 20150529
  Serious: Yes (Disabling)
  Sender: FDA-Public Use
  Company Number: GB-ACCORD-027054

PATIENT
  Age: 57 Year
  Sex: Male

DRUGS (1)
  1. SIMVASTATIN. [Suspect]
     Active Substance: SIMVASTATIN
     Indication: BLOOD CHOLESTEROL INCREASED
     Dosage: 40 MG, UNK
     Route: 048

REACTIONS (9)
  - Psychiatric symptom [Unknown]
  - Balance disorder [Unknown]
  - Impaired work ability [Unknown]
  - Myalgia [Unknown]
  - Quality of life decreased [Unknown]
  - Tenderness [Unknown]
  - Drug intolerance [Unknown]
  - Social avoidant behaviour [Unknown]
  - Asthenia [Unknown]
